FAERS Safety Report 4648262-X (Version None)
Quarter: 2005Q2

REPORT INFORMATION
  Report Type: 
  Country: None (occurrence: None)
  Receive Date: 20050426
  Receipt Date: 20050421
  Transmission Date: 20051028
  Serious: Yes (Other)
  Sender: FDA-Public Use
  Company Number: 2005-03-1431

PATIENT
  Age: 50 Year
  Sex: Female
  Weight: 72.5755 kg

DRUGS (3)
  1. CLARITIN [Suspect]
     Indication: MULTIPLE ALLERGIES
     Dosage: 1 QD ORAL
     Route: 048
     Dates: start: 20050301, end: 20050319
  2. BENADRYL [Suspect]
     Dosage: ORAL
     Route: 048
  3. PHENOBARBITAL [Concomitant]

REACTIONS (1)
  - CONVULSION [None]
